FAERS Safety Report 4523494-X (Version None)
Quarter: 2004Q4

REPORT INFORMATION
  Report Type: 
  Country: None (occurrence: None)
  Receive Date: 20041209
  Receipt Date: 20041209
  Transmission Date: 20050328
  Serious: Yes (Life-Threatening, Hospitalization, Disabling)
  Sender: FDA-Public Use
  Company Number: None

PATIENT
  Age: 49 Year
  Sex: Male
  Weight: 92.5338 kg

DRUGS (2)
  1. BEXTRA [Suspect]
     Indication: INFLAMMATION
     Dosage: 1 TABLET EVERY DAY
     Dates: start: 20040211, end: 20041110
  2. BEXTRA [Suspect]
     Indication: INTERVERTEBRAL DISC DISORDER
     Dosage: 1 TABLET EVERY DAY
     Dates: start: 20040211, end: 20041110

REACTIONS (2)
  - CHEST PAIN [None]
  - CONGESTIVE CARDIOMYOPATHY [None]
